FAERS Safety Report 20196397 (Version 1)
Quarter: 2021Q4

REPORT INFORMATION
  Report Type: Report from Study
  Country: US (occurrence: US)
  Receive Date: 20211216
  Receipt Date: 20211216
  Transmission Date: 20220303
  Serious: Yes (Hospitalization)
  Sender: FDA-Public Use
  Company Number: US-MIRM-000225

PATIENT
  Age: 1 Year
  Sex: Female
  Weight: 10 kg

DRUGS (8)
  1. LIVMARLI [Suspect]
     Active Substance: MARALIXIBAT CHLORIDE
     Indication: Pruritus
     Route: 048
  2. 1571071 (GLOBALC3Sep19): Simethicone [Concomitant]
     Indication: Product used for unknown indication
     Dosage: TIME INTERVAL: AS NECESSARY
     Route: 048
  3. 2086252 (GLOBALC3Sep19): Enfamil fer-n-sol iron supplement drops [Concomitant]
     Indication: Product used for unknown indication
  4. 1265193 (GLOBALC3Sep19): Furosemide [Concomitant]
     Indication: Product used for unknown indication
     Route: 048
  5. 2751198 (GLOBALC3Sep19): Epaned [Concomitant]
     Route: 048
  6. 2930039 (GLOBALC3Sep19): Hydroxyzine [Concomitant]
     Indication: Product used for unknown indication
     Dosage: TIME INTERVAL: AS NECESSARY
     Route: 048
  7. 1328777 (GLOBALC3Sep19): Ursodiol [Concomitant]
     Indication: Product used for unknown indication
     Route: 048
  8. 1224868 (GLOBALC3Sep19): Tylenol [Concomitant]
     Indication: Product used for unknown indication
     Dosage: TIME INTERVAL: AS NECESSARY
     Route: 048

REACTIONS (3)
  - Pyrexia [Unknown]
  - Diarrhoea [Unknown]
  - Pruritus [Unknown]

NARRATIVE: CASE EVENT DATE: 20211119
